FAERS Safety Report 15765697 (Version 1)
Quarter: 2018Q4

REPORT INFORMATION
  Report Type: Spontaneous
  Country: US (occurrence: US)
  Receive Date: 20181227
  Receipt Date: 20181227
  Transmission Date: 20190205
  Serious: Yes (Hospitalization, Other)
  Sender: FDA-Public Use
  Company Number: US-TEVA-2018-US-990784

PATIENT
  Sex: Female

DRUGS (1)
  1. NORGESTIMATE W/ETHINYLESTRADIOL [Suspect]
     Active Substance: ETHINYL ESTRADIOL\NORGESTIMATE
     Indication: CONTRACEPTION
     Dosage: 180;.215;.250+.035MG
     Route: 065

REACTIONS (3)
  - Menstrual disorder [Unknown]
  - Product substitution issue [Unknown]
  - Ovarian cyst ruptured [Unknown]
